FAERS Safety Report 4800230-0 (Version None)
Quarter: 2005Q4

REPORT INFORMATION
  Report Type: 
  Country: None (occurrence: None)
  Receive Date: 20051017
  Receipt Date: 20050308
  Transmission Date: 20060501
  Serious: No
  Sender: FDA-Public Use
  Company Number: US-GLAXOSMITHKLINE-A0548842A

PATIENT
  Age: 18 Month
  Sex: Male

DRUGS (2)
  1. CEFTIN [Suspect]
     Indication: URINARY TRACT INFECTION
     Dates: start: 20020501
  2. PRENATAL VITAMINS [Concomitant]

REACTIONS (3)
  - CALCIUM DEFICIENCY [None]
  - DENTAL CARIES [None]
  - TOOTH DISORDER [None]
